FAERS Safety Report 4507340-6 (Version None)
Quarter: 2004Q4

REPORT INFORMATION
  Report Type: 
  Country: None (occurrence: None)
  Receive Date: 20041025
  Receipt Date: 20040517
  Transmission Date: 20050328
  Serious: Yes (Other)
  Sender: FDA-Public Use
  Company Number: US-JNJFOC-20040503714

PATIENT
  Sex: 0

DRUGS (1)
  1. REMICADE [Suspect]

REACTIONS (1)
  - CYTOMEGALOVIRUS INFECTION [None]
